FAERS Safety Report 19836743 (Version 1)
Quarter: 2021Q3

REPORT INFORMATION
  Report Type: Report from Study
  Country: CR (occurrence: CR)
  Receive Date: 20210914
  Receipt Date: 20210914
  Transmission Date: 20211014
  Serious: Yes (Other)
  Sender: FDA-Public Use
  Company Number: PHHY2017CR191106

PATIENT
  Age: 50 Year
  Sex: Male

DRUGS (1)
  1. EXFORGE [Suspect]
     Active Substance: AMLODIPINE BESYLATE\VALSARTAN
     Indication: BLOOD PRESSURE ABNORMAL
     Dosage: UNK (5MG AMLODIPINE/320 MG VALSARTAN),
     Route: 065
     Dates: end: 20210903

REACTIONS (7)
  - Cardiac disorder [Unknown]
  - Drug intolerance [Unknown]
  - Malaise [Unknown]
  - Arrhythmia [Unknown]
  - Gastrointestinal disorder [Unknown]
  - Product availability issue [Unknown]
  - Abdominal discomfort [Unknown]
